FAERS Safety Report 8366606-2 (Version None)
Quarter: 2012Q2

REPORT INFORMATION
  Report Type: 
  Country: None (occurrence: None)
  Receive Date: 20120517
  Receipt Date: 20120508
  Transmission Date: 20120825
  Serious: Yes (Hospitalization, Other)
  Sender: FDA-Public Use
  Company Number: AU-ASTRAZENECA-2011SE66554

PATIENT
  Age: 21260 Day
  Sex: Female
  Weight: 53.8 kg

DRUGS (48)
  1. VANCOMYCIN [Concomitant]
     Indication: SEPSIS
     Route: 042
     Dates: start: 20111026, end: 20111026
  2. MAGNESIUM SULFATE [Concomitant]
     Indication: ELECTROLYTE SUBSTITUTION THERAPY
     Dosage: 10-20 MMOL AS REQUIRED
     Route: 042
     Dates: start: 20111026, end: 20111111
  3. METOCLOPRAMIDE [Concomitant]
     Indication: IMPAIRED GASTRIC EMPTYING
     Route: 042
     Dates: start: 20111026, end: 20111103
  4. ERYTHROMYCIN [Concomitant]
     Indication: IMPAIRED GASTRIC EMPTYING
     Route: 042
     Dates: start: 20111027, end: 20111103
  5. MIDAZOLAM [Concomitant]
     Route: 042
     Dates: start: 20111025, end: 20111026
  6. SODIUM BICARBONATE [Concomitant]
     Indication: SEPSIS
     Route: 042
     Dates: start: 20111026, end: 20111026
  7. CIPROFLOXACIN [Concomitant]
     Indication: ESCHERICHIA SEPSIS
     Route: 042
     Dates: start: 20111031, end: 20111108
  8. CEFTRIAXONE SODIUM [Concomitant]
     Indication: SEPSIS
     Route: 042
     Dates: start: 20111025, end: 20111026
  9. PIPERACILLIN AND TAZOBACTAM [Concomitant]
     Indication: SEPSIS
     Route: 042
     Dates: start: 20111028, end: 20111031
  10. FENTANYL-100 [Concomitant]
     Indication: PAIN
     Dosage: 100-1000 MCG, VARIABLE INFUSION
     Route: 042
     Dates: start: 20111025, end: 20111027
  11. VANCOMYCIN [Concomitant]
     Dosage: CONTINUOUS INFUSION
     Route: 042
     Dates: start: 20111027, end: 20111028
  12. PIPERACILLIN AND TAZOBACTAM [Concomitant]
     Route: 042
     Dates: start: 20111114, end: 20111121
  13. DEXTROSE 50% [Concomitant]
     Indication: HYPOGLYCAEMIA
     Route: 042
     Dates: start: 20111026, end: 20111109
  14. MULTI-VITAMIN [Concomitant]
     Indication: ELECTROLYTE SUBSTITUTION THERAPY
     Route: 048
     Dates: start: 20111026, end: 20111107
  15. MIDAZOLAM [Concomitant]
     Indication: SEDATIVE THERAPY
     Dosage: 0.5-15 MG INFUSION, DAILY
     Route: 042
     Dates: start: 20111025, end: 20111026
  16. AZITHROMYCIN [Concomitant]
     Indication: SEPSIS
     Route: 042
     Dates: start: 20111025, end: 20111026
  17. VITAMIN K TAB [Concomitant]
     Indication: SEPSIS
     Route: 042
     Dates: start: 20111026, end: 20111107
  18. MIDAZOLAM [Concomitant]
     Route: 042
     Dates: start: 20111025, end: 20111026
  19. CIPROFLOXACIN [Concomitant]
     Route: 042
     Dates: start: 20111109, end: 20111113
  20. VANCOMYCIN [Concomitant]
     Indication: STAPHYLOCOCCAL INFECTION
     Route: 042
     Dates: start: 20111026, end: 20111026
  21. TRACE ELEMENT [Concomitant]
     Indication: ELECTROLYTE SUBSTITUTION THERAPY
     Dosage: 1 VIAL, ONCE DAILY
     Route: 042
     Dates: start: 20111026, end: 20111107
  22. HYDROCORTISONE [Concomitant]
     Indication: SEPSIS
     Route: 042
     Dates: start: 20111026, end: 20111028
  23. ROCURONIUM BROMIDE [Concomitant]
     Indication: MUSCLE RELAXANT THERAPY
     Route: 042
     Dates: start: 20111026, end: 20111026
  24. PLATELETS [Concomitant]
     Route: 042
     Dates: start: 20111028, end: 20111028
  25. MEROPENEM [Suspect]
     Indication: PNEUMONIA
     Dosage: CONTINUOUS INFUSION
     Route: 042
     Dates: start: 20111026, end: 20111028
  26. MICONAZOLE [Concomitant]
     Indication: PERIPROCTITIS
     Route: 003
     Dates: start: 20111108
  27. K-ACETATE [Concomitant]
     Indication: ELECTROLYTE SUBSTITUTION THERAPY
     Route: 042
     Dates: start: 20111111, end: 20111113
  28. THIAMINE [Concomitant]
     Indication: ALCOHOL ABUSE
     Route: 042
     Dates: start: 20111026, end: 20111107
  29. PANTROPRAZOLE [Concomitant]
     Indication: GASTRIC ULCER
     Route: 042
     Dates: start: 20111026, end: 20111108
  30. SLOW-K [Concomitant]
     Indication: ELECTROLYTE SUBSTITUTION THERAPY
     Route: 048
     Dates: start: 20111109, end: 20111111
  31. POTASSIUM DIHYDROGEN PHOSPHATE [Concomitant]
     Indication: ELECTROLYTE SUBSTITUTION THERAPY
     Route: 042
     Dates: start: 20111026, end: 20111026
  32. MIDAZOLAM [Concomitant]
     Indication: SEDATION
     Dosage: 0.5-15 MG INFUSION, DAILY
     Route: 042
     Dates: start: 20111025, end: 20111026
  33. MEROPENEM [Suspect]
     Indication: MULTI-ORGAN FAILURE
     Dosage: CONTINUOUS INFUSION
     Route: 042
     Dates: start: 20111026, end: 20111028
  34. AZD9773 CODE NOT BROKEN [Concomitant]
     Indication: SEPSIS
     Dosage: BID
     Route: 042
     Dates: start: 20111026, end: 20111030
  35. VANCOMYCIN [Concomitant]
     Dosage: CONTINUOUS INFUSION
     Route: 042
     Dates: start: 20111027, end: 20111028
  36. PROPOFOL [Concomitant]
     Indication: SEDATIVE THERAPY
     Dosage: 0-100 MG DAILY, VARIABLE INFUSION
     Route: 042
     Dates: start: 20111026, end: 20111107
  37. POTASSIUM CHLORIDE [Concomitant]
     Indication: ELECTROLYTE SUBSTITUTION THERAPY
     Dosage: 10-30 MMOL, AS REQUIRED
     Route: 042
     Dates: start: 20111028, end: 20111104
  38. VENTOLIN [Concomitant]
     Indication: ACUTE RESPIRATORY DISTRESS SYNDROME
     Dosage: 4 PUFFS QID
     Route: 055
     Dates: start: 20111030, end: 20111101
  39. PLASMA [Concomitant]
     Route: 042
     Dates: start: 20111026, end: 20111026
  40. ALBUMEX [Concomitant]
     Route: 042
     Dates: start: 20111031, end: 20111031
  41. FROSEMIDE [Concomitant]
     Indication: RENAL FAILURE ACUTE
     Dosage: 40-80 MG AS REQUIRED
     Route: 042
     Dates: start: 20111105
  42. HEPARIN [Concomitant]
     Indication: DEEP VEIN THROMBOSIS
     Route: 058
     Dates: start: 20111002, end: 20111109
  43. HYDROCORTISONE [Concomitant]
     Route: 042
     Dates: start: 20111030, end: 20111129
  44. AMIODARONE HCL [Concomitant]
     Indication: ARRHYTHMIA
     Route: 042
     Dates: start: 20111026, end: 20111026
  45. PLATELETS [Concomitant]
     Indication: ESCHERICHIA SEPSIS
     Route: 042
     Dates: start: 20111026, end: 20111026
  46. PLASMA [Concomitant]
     Indication: ESCHERICHIA SEPSIS
     Route: 042
     Dates: start: 20111026, end: 20111026
  47. ALBUMEX [Concomitant]
     Indication: ESCHERICHIA SEPSIS
     Route: 042
     Dates: start: 20111028, end: 20111028
  48. ALBUMEX [Concomitant]
     Route: 042
     Dates: start: 20111031, end: 20111031

REACTIONS (3)
  - HEPATIC INFECTION FUNGAL [None]
  - LIVER FUNCTION TEST ABNORMAL [None]
  - GASTROINTESTINAL HAEMORRHAGE [None]
